FAERS Safety Report 14270828 (Version 1)
Quarter: 2017Q4

REPORT INFORMATION
  Report Type: Spontaneous
  Country: JP (occurrence: JP)
  Receive Date: 20171211
  Receipt Date: 20171211
  Transmission Date: 20180321
  Serious: Yes (Death)
  Sender: FDA-Public Use
  Company Number: JP-OTSUKA-BJ20072387

PATIENT
  Age: 38 Year
  Sex: Female
  Weight: 74.1 kg

DRUGS (21)
  1. CARBAMAZEPINE. [Concomitant]
     Active Substance: CARBAMAZEPINE
     Dosage: 200 MG, TID
     Route: 048
     Dates: start: 20070324, end: 20070516
  2. RISPERDAL [Concomitant]
     Active Substance: RISPERIDONE
     Indication: PRODUCT USED FOR UNKNOWN INDICATION
     Dosage: UNK
     Route: 048
     Dates: start: 20070317, end: 20070328
  3. CARBAMAZEPINE. [Concomitant]
     Active Substance: CARBAMAZEPINE
     Dosage: 200 MG, QID
     Route: 048
     Dates: start: 20070517, end: 20070527
  4. DORAL [Concomitant]
     Active Substance: QUAZEPAM
     Indication: PRODUCT USED FOR UNKNOWN INDICATION
     Dosage: 30 MG, QD
     Route: 048
     Dates: start: 20070508, end: 20070527
  5. CARBAMAZEPINE. [Concomitant]
     Active Substance: CARBAMAZEPINE
     Indication: PRODUCT USED FOR UNKNOWN INDICATION
     Dosage: 200 MG, BID
     Route: 048
     Dates: start: 20070317, end: 20070323
  6. BEZATOL [Concomitant]
     Active Substance: BEZAFIBRATE
     Indication: PRODUCT USED FOR UNKNOWN INDICATION
     Dosage: UNK N/A, UNK
     Route: 048
     Dates: start: 20070317, end: 20070527
  7. RAVONA [Concomitant]
     Dosage: 100 MG, PRN
     Route: 048
     Dates: start: 20070508, end: 20070508
  8. SHINLUCK [Concomitant]
     Active Substance: SODIUM PICOSULFATE
     Indication: PRODUCT USED FOR UNKNOWN INDICATION
     Dosage: 15 MG, QD
     Route: 048
     Dates: start: 20070524, end: 20070527
  9. ABILIFY [Suspect]
     Active Substance: ARIPIPRAZOLE
     Dosage: 12 MG, BID
     Route: 048
     Dates: start: 20070324, end: 20070328
  10. ABILIFY [Suspect]
     Active Substance: ARIPIPRAZOLE
     Dosage: UNK UNK, BID
     Route: 048
     Dates: start: 20070329, end: 20070523
  11. VEGETAMIN A [Concomitant]
     Active Substance: CHLORPROMAZINE HYDROCHLORIDE\PHENOBARBITAL\PROMETHAZINE
     Indication: PRODUCT USED FOR UNKNOWN INDICATION
     Dosage: 1 DF, QD
     Route: 048
     Dates: start: 20070509, end: 20070527
  12. WINTERMIN [Concomitant]
     Active Substance: PROMAZINE
     Indication: PRODUCT USED FOR UNKNOWN INDICATION
     Dosage: 25 MG, BID
     Route: 048
     Dates: start: 20070517, end: 20070527
  13. ABILIFY [Suspect]
     Active Substance: ARIPIPRAZOLE
     Dosage: UNK UNK, BID
     Route: 048
     Dates: start: 20070524, end: 20070527
  14. SENNOSIDE [Concomitant]
     Active Substance: SENNOSIDES
     Dosage: UNK
     Route: 048
     Dates: start: 20070508, end: 20070508
  15. SENNOSIDE [Concomitant]
     Active Substance: SENNOSIDES
     Dosage: 24 MG, UNK
     Route: 048
     Dates: start: 20070517, end: 20070527
  16. SOMELIN [Concomitant]
     Active Substance: HALOXAZOLAM
     Indication: PRODUCT USED FOR UNKNOWN INDICATION
     Dosage: 10 MG, QD
     Route: 048
     Dates: start: 20070317, end: 20070507
  17. LULLAN [Concomitant]
     Active Substance: PEROSPIRONE HYDROCHLORIDE
     Indication: PRODUCT USED FOR UNKNOWN INDICATION
     Dosage: 8 MG, BID
     Route: 048
     Dates: start: 20070524, end: 20070527
  18. ABILIFY [Suspect]
     Active Substance: ARIPIPRAZOLE
     Indication: SCHIZOPHRENIA
     Dosage: UNK UNK, BID
     Route: 048
     Dates: start: 20070317, end: 20070323
  19. RISPERDAL [Concomitant]
     Active Substance: RISPERIDONE
     Dosage: UNK
     Route: 048
     Dates: start: 20070329, end: 20070404
  20. SENNOSIDE [Concomitant]
     Active Substance: SENNOSIDES
     Indication: PRODUCT USED FOR UNKNOWN INDICATION
     Dosage: UNK
     Route: 048
     Dates: start: 20070317, end: 20070317
  21. RAVONA [Concomitant]
     Indication: PRODUCT USED FOR UNKNOWN INDICATION
     Dosage: 100 MG, PRN
     Route: 048
     Dates: start: 20070317, end: 20070317

REACTIONS (1)
  - Cardiac failure [Fatal]

NARRATIVE: CASE EVENT DATE: 20070528
